FAERS Safety Report 5515730-8 (Version None)
Quarter: 2007Q4

REPORT INFORMATION
  Report Type: 
  Country: None (occurrence: None)
  Receive Date: 20071114
  Receipt Date: 20071105
  Transmission Date: 20080405
  Serious: Yes (Death, Hospitalization)
  Sender: FDA-Public Use
  Company Number: PHHO2007CA12563

PATIENT
  Age: 74 Year
  Sex: Male

DRUGS (3)
  1. AMN107 [Suspect]
     Indication: MASTOCYTOSIS
     Dosage: 400MG QD
     Route: 048
     Dates: start: 20070727, end: 20071022
  2. AMN107 [Suspect]
     Dosage: 400 MG, QD
     Route: 048
     Dates: start: 20070705, end: 20070715
  3. HYZAAR [Concomitant]

REACTIONS (8)
  - ASCITES [None]
  - BLOOD CREATININE INCREASED [None]
  - DEHYDRATION [None]
  - DIARRHOEA [None]
  - DISEASE PROGRESSION [None]
  - DRUG INEFFECTIVE [None]
  - GASTROINTESTINAL DISORDER [None]
  - HEPATIC FAILURE [None]
